FAERS Safety Report 8465685-1 (Version None)
Quarter: 2012Q2

REPORT INFORMATION
  Report Type: 
  Country: None (occurrence: None)
  Receive Date: 20120626
  Receipt Date: 20120618
  Transmission Date: 20120825
  Serious: Yes (Other)
  Sender: FDA-Public Use
  Company Number: US-BAYER-2012-061081

PATIENT
  Sex: Female

DRUGS (15)
  1. VIIBRYD [Suspect]
     Dosage: 20 MG, ONCE
     Route: 048
     Dates: start: 20110101, end: 20110101
  2. INDERAL [Concomitant]
     Dosage: 10 MG, ONCE
  3. VIIBRYD [Suspect]
     Dosage: 40 MG, ONCE
     Route: 048
     Dates: start: 20110101
  4. PROTONIX [Concomitant]
     Indication: GASTROOESOPHAGEAL REFLUX DISEASE
     Dosage: 40 MG, BID
  5. IMITREX [Concomitant]
     Indication: MIGRAINE
     Dosage: UNK UNK, PRN
  6. VIIBRYD [Suspect]
     Indication: DEPRESSION
     Dosage: 10 MG, ONCE
     Route: 048
     Dates: start: 20110829, end: 20110101
  7. EXFORGE [Concomitant]
     Indication: HYPERTENSION
     Dosage: UNK
  8. AVELOX [Suspect]
     Indication: PNEUMONIA
     Dosage: UNK
  9. DEPLI (CALCIUM LEVOMEFOLATE) [Concomitant]
     Indication: OSTEOPOROSIS
     Dosage: 7.5 MG, ONCE
  10. XANAX [Concomitant]
     Indication: ANXIETY
     Dosage: 0.5 MG, PRN
  11. VITAMIN D [Concomitant]
     Dosage: 10000 IU, ONCE
  12. AMBIEN [Concomitant]
     Indication: INSOMNIA
     Dosage: UNK
  13. DOXEPIN [Concomitant]
     Dosage: 25 MG, TID
  14. VYVANSE [Concomitant]
     Dosage: 20 MG, ONCE
  15. CIPROFLOXACIN HCL [Suspect]
     Dosage: 500 MG, BID

REACTIONS (8)
  - RASH ERYTHEMATOUS [None]
  - PRURITUS [None]
  - LOSS OF CONSCIOUSNESS [None]
  - DIARRHOEA [None]
  - ASPIRATION [None]
  - DRUG INTERACTION [None]
  - PNEUMONIA [None]
  - ANAPHYLACTIC REACTION [None]
